FAERS Safety Report 10881551 (Version 3)
Quarter: 2015Q2

REPORT INFORMATION
  Report Type: Spontaneous
  Country: IT (occurrence: None)
  Receive Date: 20150226
  Receipt Date: 20150417
  Transmission Date: 20150821
  Serious: Yes (Hospitalization)
  Sender: FDA-Public Use
  Company Number: 8013008

PATIENT
  Age: 58 Year
  Sex: Female

DRUGS (2)
  1. EUTIROX (LEVOTHYROXINE SODIUM) [Suspect]
     Active Substance: LEVOTHYROXINE SODIUM
     Indication: HYPOTHYROIDISM
  2. BLOPRESS (CANDESARTAN CILEXETIL) [Suspect]
     Active Substance: CANDESARTAN CILEXETIL
     Indication: HYPERTENSION
     Route: 048
     Dates: start: 20150130, end: 20150130

REACTIONS (6)
  - Refusal of treatment by patient [None]
  - Fatigue [None]
  - Abnormal behaviour [None]
  - Blood pressure increased [None]
  - Drug abuse [None]
  - Mental disorder [None]

NARRATIVE: CASE EVENT DATE: 20150130
